FAERS Safety Report 15940400 (Version 2)
Quarter: 2019Q1

REPORT INFORMATION
  Report Type: Spontaneous
  Country: US (occurrence: US)
  Receive Date: 20190208
  Receipt Date: 20190214
  Transmission Date: 20190417
  Serious: Yes (Other)
  Sender: FDA-Public Use
  Company Number: US-ASTRAZENECA-2018SF14718

PATIENT
  Age: 18312 Day
  Sex: Female
  Weight: 83.9 kg

DRUGS (18)
  1. PRILOSEC OTC [Suspect]
     Active Substance: OMEPRAZOLE MAGNESIUM
     Route: 048
     Dates: start: 1970, end: 2009
  2. PROTONIX [Suspect]
     Active Substance: PANTOPRAZOLE SODIUM
     Route: 065
     Dates: start: 1970, end: 2009
  3. TAGAMET [Concomitant]
     Active Substance: CIMETIDINE
  4. ALLOPURINOL. [Concomitant]
     Active Substance: ALLOPURINOL
  5. PLAVIX [Concomitant]
     Active Substance: CLOPIDOGREL BISULFATE
  6. NEXIUM 24HR [Suspect]
     Active Substance: ESOMEPRAZOLE MAGNESIUM
     Route: 048
     Dates: start: 1970, end: 2009
  7. PREVACID 24 HR [Suspect]
     Active Substance: LANSOPRAZOLE
     Route: 065
     Dates: start: 1970, end: 2009
  8. DERMOTIC OIL [Concomitant]
  9. SENSIPAR [Concomitant]
     Active Substance: CINACALCET HYDROCHLORIDE
  10. MIDODRINE [Concomitant]
     Active Substance: MIDODRINE
  11. PEPCID [Concomitant]
     Active Substance: FAMOTIDINE
  12. HECTOROL [Concomitant]
     Active Substance: DOXERCALCIFEROL
  13. RENVELA [Concomitant]
     Active Substance: SEVELAMER CARBONATE
  14. DIATX [Concomitant]
     Active Substance: ASCORBIC ACID\BIOTIN\CALCIUM PANTOTHENATE\CYANOCOBALAMIN CO-57\FOLIC ACID\NIACINAMIDE\PYRIDOXINE HYDROCHLORIDE\RIBOFLAVIN\THIAMINE MONONITRATE
  15. RENO [Concomitant]
  16. ZANTAC [Concomitant]
     Active Substance: RANITIDINE HYDROCHLORIDE
  17. LIDOCAINE. [Concomitant]
     Active Substance: LIDOCAINE
  18. AZITHROMYCIN ANHYDROUS. [Concomitant]
     Active Substance: AZITHROMYCIN ANHYDROUS

REACTIONS (4)
  - Nephropathy [Unknown]
  - Chronic kidney disease [Unknown]
  - Renal failure [Unknown]
  - End stage renal disease [Unknown]

NARRATIVE: CASE EVENT DATE: 20040802
